FAERS Safety Report 7768691-5 (Version None)
Quarter: 2011Q3

REPORT INFORMATION
  Report Type: 
  Country: None (occurrence: None)
  Receive Date: 20110922
  Receipt Date: 20100901
  Transmission Date: 20111222
  Serious: Yes (Other)
  Sender: FDA-Public Use
  Company Number: US-ASTRAZENECA-2009SE13184

PATIENT
  Age: 42 Year
  Sex: Male

DRUGS (20)
  1. SEROQUEL [Suspect]
     Indication: DEPRESSION
     Route: 048
     Dates: start: 20060101
  2. SEROQUEL [Suspect]
     Dosage: 50 MG TO 450 MG
     Route: 048
     Dates: start: 20061208
  3. SEROQUEL [Suspect]
     Dosage: 50 MG TO 450 MG
     Route: 048
     Dates: start: 20061208
  4. ABILIFY [Concomitant]
     Dosage: 20 MG TWO TABLETS BY MOUTH EVERY DAY, 40 MG QD
     Route: 048
     Dates: start: 20061002
  5. OMEPRAZOLE [Concomitant]
     Indication: GASTROOESOPHAGEAL REFLUX DISEASE
     Route: 048
     Dates: start: 20070925
  6. SEROQUEL [Suspect]
     Indication: HALLUCINATION
     Route: 048
     Dates: start: 20060101
  7. SEROQUEL [Suspect]
     Dosage: 50 MG TO 450 MG
     Route: 048
     Dates: start: 20061208
  8. BENZTROPINE MESYLATE [Concomitant]
     Route: 048
     Dates: start: 20061002, end: 20061130
  9. DULOXETINE HYDROCHLORIDE [Concomitant]
     Dosage: 30 MG TO 90 MG
     Route: 048
     Dates: start: 20061002
  10. SEROQUEL [Suspect]
     Indication: INSOMNIA
     Route: 048
     Dates: start: 20060101
  11. CLONAZEPAM [Concomitant]
     Route: 048
     Dates: start: 20061002
  12. SEROQUEL [Suspect]
     Indication: SCHIZOPHRENIA
     Route: 048
     Dates: start: 20060101
  13. RISPERDAL [Concomitant]
     Dosage: TWO TABLETS BY MOUTH AT BEDTIME
     Route: 048
     Dates: start: 20061002, end: 20061208
  14. SYNTHROID [Concomitant]
     Indication: HYPOTHYROIDISM
     Route: 048
     Dates: start: 20070925
  15. SEROQUEL [Suspect]
     Indication: AGITATION
     Route: 048
     Dates: start: 20060101
  16. SEROQUEL [Suspect]
     Dosage: 50 MG TO 450 MG
     Route: 048
     Dates: start: 20061208
  17. SEROQUEL [Suspect]
     Dosage: 50 MG TO 450 MG
     Route: 048
     Dates: start: 20061208
  18. CLOZAPINE [Concomitant]
     Dosage: THREE TABLETS BY MOUTH AT BEDTIME
     Route: 048
     Dates: start: 20071015
  19. ZYPREXA [Concomitant]
  20. LORATADINE [Concomitant]
     Indication: RHINITIS ALLERGIC
     Route: 048
     Dates: start: 20071015

REACTIONS (5)
  - TYPE 2 DIABETES MELLITUS [None]
  - HYPERTENSION [None]
  - BLOOD CHOLESTEROL INCREASED [None]
  - ERECTILE DYSFUNCTION [None]
  - HYPOTHYROIDISM [None]
